FAERS Safety Report 7178745-2 (Version None)
Quarter: 2010Q4

REPORT INFORMATION
  Report Type: 
  Country: None (occurrence: None)
  Receive Date: 20101221
  Receipt Date: 20101214
  Transmission Date: 20110411
  Serious: Yes (Life-Threatening, Other)
  Sender: FDA-Public Use
  Company Number: DE-JNJFOC-20101206350

PATIENT
  Age: 29 Month

DRUGS (1)
  1. ACETAMINOPHEN W/ CODEINE [Suspect]
     Indication: ILL-DEFINED DISORDER
     Route: 065

REACTIONS (2)
  - APNOEA [None]
  - BRAIN INJURY [None]
